FAERS Safety Report 18489896 (Version 3)
Quarter: 2020Q4

REPORT INFORMATION
  Report Type: Report from Study
  Country: MX (occurrence: MX)
  Receive Date: 20201111
  Receipt Date: 20201124
  Transmission Date: 20210114
  Serious: Yes (Life-Threatening, Hospitalization, Other)
  Sender: FDA-Public Use
  Company Number: NVSC2020MX299324

PATIENT
  Age: 42 Year
  Sex: Male
  Weight: 60 kg

DRUGS (4)
  1. EXFORGE HCT [Suspect]
     Active Substance: AMLODIPINE BESYLATE\HYDROCHLOROTHIAZIDE\VALSARTAN
     Indication: HYPERTENSION
     Dosage: 1 DF, BID (IN THE MORNING AND IN THE AFTERNOON, STARTED 2.5 YEAR AGO)
     Route: 048
     Dates: end: 20200523
  2. INSULIN [Concomitant]
     Active Substance: INSULIN NOS
     Indication: DIABETES MELLITUS
     Dosage: 16 UI, QD, START 2 YEARS AGO
     Route: 058
  3. GALVUS MET [Suspect]
     Active Substance: METFORMIN HYDROCHLORIDE\VILDAGLIPTIN
     Indication: DIABETES MELLITUS
     Dosage: 1 DF, QD (50/500 MG IN THE MORNING, STARTED 2 YEAR AGO)
     Route: 048
  4. GALVUS MET [Suspect]
     Active Substance: METFORMIN HYDROCHLORIDE\VILDAGLIPTIN
     Dosage: 1 DF, QD (1000/50 MG, IN THE MORNING, STARTED 1 YEAR AGO)
     Route: 048
     Dates: end: 202005

REACTIONS (6)
  - Emotional disorder [Not Recovered/Not Resolved]
  - Arterial occlusive disease [Unknown]
  - Blood pressure increased [Not Recovered/Not Resolved]
  - Tremor [Not Recovered/Not Resolved]
  - Intentional product misuse [Unknown]
  - Infarction [Recovered/Resolved]

NARRATIVE: CASE EVENT DATE: 202002
